FAERS Safety Report 8198792 (Version 2)
Quarter: 2012Q4

REPORT INFORMATION
  Report Type: 
  Country: DK (occurrence: DK)
  Receive Date: 20111025
  Receipt Date: 20121123
  Transmission Date: 20130627
  Serious: Yes (Hospitalization)
  Sender: FDA-Public Use
  Company Number: PHHO2010DK18710

PATIENT
  Weight: 84 kg

DRUGS (7)
  1. WARFARIN [Suspect]
     Indication: ANTICOAGULANT THERAPY
     Dosage: 3 mg, QD
     Dates: start: 20091123, end: 20101208
  2. BLINDED ALISKIREN [Suspect]
     Indication: CARDIAC FAILURE
     Dosage: Code not broken
     Route: 048
     Dates: start: 20101109
  3. BLINDED ENALAPRIL [Suspect]
     Indication: CARDIAC FAILURE
     Dosage: Code not broken
     Route: 048
     Dates: start: 20101109
  4. BLINDED NO TREATMENT RECEIVED [Suspect]
     Indication: CARDIAC FAILURE
     Dosage: Code not broken
     Route: 048
     Dates: start: 20101109
  5. ASA [Suspect]
     Indication: ANTIPLATELET THERAPY
     Dosage: 75 mg, QD
     Dates: start: 1991, end: 20101208
  6. IRON [Concomitant]
     Indication: ANAEMIA
     Dosage: UNK
  7. ADRENALIN [Suspect]

REACTIONS (6)
  - Duodenal ulcer [Recovered/Resolved]
  - Abdominal pain [Recovered/Resolved]
  - Faeces discoloured [Recovered/Resolved]
  - Vomiting [Recovered/Resolved]
  - Haematemesis [Recovered/Resolved]
  - Melaena [Recovered/Resolved]
